FAERS Safety Report 4962337-7 (Version None)
Quarter: 2006Q2

REPORT INFORMATION
  Report Type: 
  Country: None (occurrence: None)
  Receive Date: 20060403
  Receipt Date: 20060403
  Transmission Date: 20061013
  Serious: Yes (Hospitalization)
  Sender: FDA-Public Use
  Company Number: None

PATIENT
  Age: 70 Year
  Sex: Male
  Weight: 102.0593 kg

DRUGS (4)
  1. ALBUTEROL [Suspect]
     Indication: DYSPNOEA
     Dosage: Q20 MIN
  2. ADENOSINE [Suspect]
     Indication: TACHYCARDIA
     Dosage: 6 MG IV X 1 , 12MG IV X 2
     Route: 042
  3. DILTIAZEM [Suspect]
     Indication: TACHYCARDIA
     Dosage: 20MG IV X 1
     Route: 042
  4. MIDAZOLAM [Suspect]
     Indication: CARDIOVERSION
     Dosage: 5 MG IV X 1
     Route: 042

REACTIONS (11)
  - APNOEA [None]
  - BRONCHIECTASIS [None]
  - CARDIO-RESPIRATORY ARREST [None]
  - CYANOSIS [None]
  - DYSPNOEA [None]
  - INFECTIVE EXACERBATION OF CHRONIC OBSTRUCTIVE AIRWAYS DISEASE [None]
  - LOSS OF CONSCIOUSNESS [None]
  - OXYGEN SATURATION DECREASED [None]
  - PRODUCTIVE COUGH [None]
  - SPUTUM DISCOLOURED [None]
  - VENTRICULAR TACHYCARDIA [None]
